FAERS Safety Report 9266770 (Version 1)
Quarter: 2013Q2

REPORT INFORMATION
  Report Type: Spontaneous
  Country: US (occurrence: US)
  Receive Date: 20130502
  Receipt Date: 20130502
  Transmission Date: 20140414
  Serious: Yes (Other)
  Sender: FDA-Public Use
  Company Number: US-ABBOTT-13P-163-1080710-00

PATIENT
  Age: 24 Year
  Sex: 0

DRUGS (9)
  1. DEPAKOTE ER [Suspect]
     Indication: CONVULSION
     Dates: start: 199807
  2. DEPAKOTE ER [Suspect]
     Dates: end: 199807
  3. TEGRETOL XR [Suspect]
     Indication: CONVULSION
     Dosage: 2 TABS IN AM, 3 TABS AT NIGHT
     Dates: start: 199807
  4. TEGRETOL XR [Suspect]
     Dates: end: 199807
  5. GINKOBA [Suspect]
     Indication: PRODUCT USED FOR UNKNOWN INDICATION
  6. FOLIC ACID [Concomitant]
     Indication: PRODUCT USED FOR UNKNOWN INDICATION
  7. VITAMINS [Concomitant]
     Indication: PRODUCT USED FOR UNKNOWN INDICATION
     Dates: start: 20110131
  8. PRENATAL VITAMINS [Concomitant]
     Indication: PRODUCT USED FOR UNKNOWN INDICATION
  9. ASA [Concomitant]
     Indication: PRODUCT USED FOR UNKNOWN INDICATION

REACTIONS (18)
  - Convulsion [Unknown]
  - Weight increased [Unknown]
  - Balance disorder [Unknown]
  - Vomiting [Unknown]
  - Nausea [Unknown]
  - Feeling abnormal [Unknown]
  - Visual impairment [Unknown]
  - Dizziness [Unknown]
  - Loss of consciousness [Unknown]
  - Disease recurrence [None]
  - Pregnancy [None]
  - Caesarean section [None]
  - Female sterilisation [None]
  - Abortion spontaneous [None]
  - Hyperhomocysteinaemia [None]
  - Foetal death [None]
  - Petit mal epilepsy [None]
  - Exposure during pregnancy [None]
